FAERS Safety Report 6879741-2 (Version None)
Quarter: 2010Q3

REPORT INFORMATION
  Report Type: 
  Country: None (occurrence: None)
  Receive Date: 20100728
  Receipt Date: 20100716
  Transmission Date: 20110219
  Serious: Yes (Other)
  Sender: FDA-Public Use
  Company Number: AU-SANOFI-AVENTIS-2010SA032259

PATIENT
  Age: 79 Year
  Sex: Male

DRUGS (10)
  1. ARAVA [Suspect]
     Dates: start: 20071212
  2. ADVANTAN [Concomitant]
  3. ASPIRIN [Concomitant]
  4. FOLIC ACID [Concomitant]
  5. LOPERAMIDE [Concomitant]
  6. ALL OTHER THERAPEUTIC PRODUCTS [Concomitant]
  7. METHOTREXATE [Concomitant]
  8. PANAMAX [Concomitant]
  9. PREDNISOLONE [Concomitant]
  10. SYMBICORT [Concomitant]

REACTIONS (2)
  - BOWEN'S DISEASE [None]
  - GINGIVITIS [None]
